FAERS Safety Report 8495451-2 (Version None)
Quarter: 2012Q3

REPORT INFORMATION
  Report Type: 
  Country: None (occurrence: None)
  Receive Date: 20120709
  Receipt Date: 20120702
  Transmission Date: 20120928
  Serious: Yes (Hospitalization)
  Sender: FDA-Public Use
  Company Number: FR-PFIZER INC-2012157572

PATIENT
  Age: 4 Week
  Sex: Female
  Weight: 1.35 kg

DRUGS (5)
  1. CAFFEINE [Concomitant]
     Dosage: 5 MG/KG, 1X/DAY
     Dates: start: 20120329, end: 20120511
  2. NEORECORMON [Concomitant]
     Dosage: 250 IU/KG, THRICE WEEKLY
     Route: 042
     Dates: start: 20120403, end: 20120514
  3. HEMOCLAR [Concomitant]
     Dosage: 1 DF, 3X/DAY
     Route: 003
     Dates: start: 20120423, end: 20120427
  4. ZYVOX [Suspect]
     Indication: STAPHYLOCOCCAL SEPSIS
     Dosage: UNK
     Route: 042
     Dates: start: 20120415, end: 20120424
  5. VENOFER [Concomitant]
     Dosage: 7 MG, SINGLE
     Dates: start: 20120423, end: 20120423

REACTIONS (2)
  - BLOOD BILIRUBIN UNCONJUGATED INCREASED [None]
  - JAUNDICE [None]
